FAERS Safety Report 6840732-9 (Version None)
Quarter: 2010Q3

REPORT INFORMATION
  Report Type: 
  Country: None (occurrence: None)
  Receive Date: 20100714
  Receipt Date: 20100603
  Transmission Date: 20110219
  Serious: Yes (Hospitalization, Other)
  Sender: FDA-Public Use
  Company Number: US-BAXTER-2010BH005573

PATIENT
  Age: 41 Year
  Sex: Female
  Weight: 127 kg

DRUGS (33)
  1. HEPARIN SODIUM [Suspect]
     Indication: CATHETERISATION CARDIAC
     Route: 040
     Dates: start: 20070731, end: 20070731
  2. HEPARIN SODIUM [Suspect]
     Indication: MITRAL VALVE REPLACEMENT
     Route: 040
     Dates: start: 20070731, end: 20070731
  3. HEPARIN SODIUM [Suspect]
     Route: 058
     Dates: start: 20070801, end: 20070801
  4. HEPARIN SODIUM [Suspect]
     Route: 058
     Dates: start: 20070801, end: 20070801
  5. HEPARIN SODIUM [Suspect]
     Route: 065
     Dates: start: 20070101, end: 20070101
  6. HEPARIN SODIUM [Suspect]
     Route: 065
     Dates: start: 20070101, end: 20070101
  7. HEPARIN SODIUM [Suspect]
     Route: 058
     Dates: start: 20070802, end: 20070101
  8. HEPARIN SODIUM [Suspect]
     Route: 058
     Dates: start: 20070802, end: 20070101
  9. HEPARIN SODIUM [Suspect]
     Route: 042
     Dates: start: 20070816, end: 20070816
  10. HEPARIN SODIUM [Suspect]
     Route: 042
     Dates: start: 20070816, end: 20070816
  11. HEPARIN SODIUM [Suspect]
     Route: 040
     Dates: start: 20070820, end: 20070821
  12. HEPARIN SODIUM [Suspect]
     Route: 040
     Dates: start: 20070820, end: 20070821
  13. HEPARIN SODIUM [Suspect]
     Route: 040
     Dates: start: 20070905, end: 20070905
  14. HEPARIN SODIUM [Suspect]
     Route: 040
     Dates: start: 20070905, end: 20070905
  15. HEPARIN SODIUM [Suspect]
     Route: 041
     Dates: start: 20070912, end: 20070101
  16. HEPARIN SODIUM [Suspect]
     Route: 041
     Dates: start: 20070912, end: 20070101
  17. AMIODARONE [Concomitant]
     Indication: PRODUCT USED FOR UNKNOWN INDICATION
     Route: 065
  18. LEVOTHYROXINE SODIUM [Concomitant]
     Indication: PRODUCT USED FOR UNKNOWN INDICATION
     Route: 065
  19. FOLIC ACID [Concomitant]
     Indication: PRODUCT USED FOR UNKNOWN INDICATION
     Route: 065
  20. FUROSEMIDE [Concomitant]
     Indication: PRODUCT USED FOR UNKNOWN INDICATION
     Route: 065
  21. FLUOXETINE HCL [Concomitant]
     Indication: PRODUCT USED FOR UNKNOWN INDICATION
     Route: 065
  22. PANTOPRAZOLE [Concomitant]
     Indication: PRODUCT USED FOR UNKNOWN INDICATION
     Route: 065
  23. GABAPENTIN [Concomitant]
     Indication: PRODUCT USED FOR UNKNOWN INDICATION
     Route: 065
  24. WARFARIN [Concomitant]
     Indication: PRODUCT USED FOR UNKNOWN INDICATION
     Route: 065
  25. RENAGEL [Concomitant]
     Indication: PRODUCT USED FOR UNKNOWN INDICATION
     Route: 065
  26. CALCIUM ACETATE [Concomitant]
     Indication: PRODUCT USED FOR UNKNOWN INDICATION
     Route: 065
  27. ALBUTEROL [Concomitant]
     Indication: PRODUCT USED FOR UNKNOWN INDICATION
     Route: 065
  28. SPIRIVA [Concomitant]
     Indication: PRODUCT USED FOR UNKNOWN INDICATION
     Route: 065
  29. SEROQUEL [Concomitant]
     Indication: PRODUCT USED FOR UNKNOWN INDICATION
     Route: 065
  30. LORAZEPAM [Concomitant]
     Indication: PRODUCT USED FOR UNKNOWN INDICATION
     Route: 065
  31. NORCO [Concomitant]
     Indication: PRODUCT USED FOR UNKNOWN INDICATION
     Route: 065
  32. REMODULIN [Concomitant]
     Indication: PRODUCT USED FOR UNKNOWN INDICATION
     Route: 065
  33. ADVAIR DISKUS 100/50 [Concomitant]
     Indication: PRODUCT USED FOR UNKNOWN INDICATION
     Route: 065

REACTIONS (6)
  - BLOOD PRESSURE DECREASED [None]
  - CARDIAC FAILURE CONGESTIVE [None]
  - ERYTHEMA [None]
  - HEPARIN-INDUCED THROMBOCYTOPENIA [None]
  - PRURITUS [None]
  - RENAL FAILURE [None]
